FAERS Safety Report 25818792 (Version 1)
Quarter: 2025Q3

REPORT INFORMATION
  Report Type: Spontaneous
  Country: US (occurrence: US)
  Receive Date: 20250918
  Receipt Date: 20250918
  Transmission Date: 20251021
  Serious: Yes (Hospitalization)
  Sender: AMGEN
  Company Number: US-AMGEN-USASP2025184824

PATIENT
  Age: 74 Year
  Sex: Female

DRUGS (8)
  1. BEVACIZUMAB [Suspect]
     Active Substance: BEVACIZUMAB
     Indication: Ovarian cancer
     Route: 065
  2. CARBOPLATIN\PACLITAXEL [Concomitant]
     Active Substance: CARBOPLATIN\PACLITAXEL
  3. CARBOPLATIN\PACLITAXEL [Concomitant]
     Active Substance: CARBOPLATIN\PACLITAXEL
  4. NIRAPARIB [Concomitant]
     Active Substance: NIRAPARIB
     Dosage: 200 MILLIGRAM, QD, MAINTENANCE
  5. NIRAPARIB [Concomitant]
     Active Substance: NIRAPARIB
     Dosage: 100 MILLIGRAM, QD, FOR 6 MONTHS
  6. IFOSFAMIDE [Concomitant]
     Active Substance: IFOSFAMIDE
  7. TRASTUZUMAB DERUXTECAN [Concomitant]
     Active Substance: TRASTUZUMAB DERUXTECAN
  8. TAXOTERE [Concomitant]
     Active Substance: DOCETAXEL

REACTIONS (2)
  - Abdominal wall mass [Unknown]
  - Small intestinal obstruction [Unknown]
